FAERS Safety Report 5835557-7 (Version None)
Quarter: 2008Q3

REPORT INFORMATION
  Report Type: 
  Country: None (occurrence: None)
  Receive Date: 20080806
  Receipt Date: 20080805
  Transmission Date: 20090109
  Serious: Yes (Hospitalization)
  Sender: FDA-Public Use
  Company Number: B0530950A

PATIENT
  Age: 57 Year
  Sex: Male

DRUGS (2)
  1. SERETIDE [Suspect]
     Indication: ASTHMA
     Dosage: 2PUFF TWICE PER DAY
     Route: 055
  2. VENTOLIN [Suspect]
     Indication: ASTHMA
     Dosage: 100MCG AS REQUIRED
     Route: 055

REACTIONS (6)
  - ASTHMA [None]
  - COUGH [None]
  - DYSPNOEA [None]
  - OCCUPATIONAL EXPOSURE TO DUST [None]
  - PNEUMONIA [None]
  - POOR QUALITY SLEEP [None]
